FAERS Safety Report 10193267 (Version 1)
Quarter: 2014Q2

REPORT INFORMATION
  Report Type: Spontaneous
  Country: US (occurrence: US)
  Receive Date: 20140524
  Receipt Date: 20140524
  Transmission Date: 20141212
  Serious: No
  Sender: FDA-Public Use
  Company Number: US-SA-2013SA116933

PATIENT
  Sex: Female

DRUGS (2)
  1. LANTUS SOLOSTAR [Suspect]
     Dosage: DOSE-SHE TAKES UP TO 28 UNITS
     Route: 051
  2. SOLOSTAR [Concomitant]

REACTIONS (6)
  - Hot flush [Unknown]
  - Nausea [Unknown]
  - Anxiety [Unknown]
  - Malaise [Unknown]
  - Depressed mood [Unknown]
  - Blood glucose increased [Unknown]
